FAERS Safety Report 5868080-4 (Version None)
Quarter: 2008Q3

REPORT INFORMATION
  Report Type: 
  Country: None (occurrence: None)
  Receive Date: 20080902
  Receipt Date: 20080409
  Transmission Date: 20090109
  Serious: No
  Sender: FDA-Public Use
  Company Number: US-ABBOTT-08P-163-0446513-00

PATIENT
  Sex: Male
  Weight: 54.48 kg

DRUGS (1)
  1. DEPAKOTE ER [Suspect]
     Indication: CONVULSION
     Dosage: 500 MG, 2 TABLETS, TWICE DAILY
     Route: 048
     Dates: start: 20080301

REACTIONS (1)
  - MEDICATION RESIDUE [None]
